FAERS Safety Report 18004891 (Version 12)
Quarter: 2022Q2

REPORT INFORMATION
  Report Type: Spontaneous
  Country: US (occurrence: US)
  Receive Date: 20200709
  Receipt Date: 20220617
  Transmission Date: 20220721
  Serious: Yes (Hospitalization, Other)
  Sender: FDA-Public Use
  Company Number: US-PFIZER INC-2020261467

PATIENT
  Age: 78 Year
  Sex: Male

DRUGS (2)
  1. VYNDAMAX [Suspect]
     Active Substance: TAFAMIDIS
     Indication: Cardiac amyloidosis
     Dosage: 61 MG, DAILY
     Route: 048
  2. VYNDAMAX [Suspect]
     Active Substance: TAFAMIDIS
     Indication: Amyloidosis senile

REACTIONS (9)
  - Internal haemorrhage [Unknown]
  - Bladder cancer [Unknown]
  - Tooth abscess [Unknown]
  - Tooth fracture [Unknown]
  - General physical health deterioration [Recovering/Resolving]
  - Illness [Unknown]
  - Carpal tunnel syndrome [Unknown]
  - Feeling abnormal [Unknown]
  - Malaise [Unknown]
